FAERS Safety Report 7912277-6 (Version None)
Quarter: 2011Q4

REPORT INFORMATION
  Report Type: 
  Country: None (occurrence: None)
  Receive Date: 20111114
  Receipt Date: 20111108
  Transmission Date: 20120403
  Serious: Yes (Hospitalization)
  Sender: FDA-Public Use
  Company Number: CA-MERCK-1006USA02499

PATIENT
  Age: 54 Year
  Sex: Female
  Weight: 76 kg

DRUGS (10)
  1. LIPIDIL [Concomitant]
     Route: 065
  2. AVANDIA [Concomitant]
     Route: 065
  3. LOPID [Concomitant]
     Route: 065
  4. METFORMIN [Concomitant]
     Route: 065
  5. NIACIN [Concomitant]
     Route: 065
  6. ASPIRIN [Concomitant]
     Route: 065
  7. DILANTIN [Concomitant]
     Dosage: 300 ALT - 200
     Route: 065
  8. JANUVIA [Suspect]
     Indication: TYPE 2 DIABETES MELLITUS
     Route: 048
     Dates: start: 20071018
  9. RABEPRAZOLE SODIUM [Concomitant]
     Route: 065
  10. SYNTHROID [Concomitant]
     Dosage: 17 ALT - 225
     Route: 065

REACTIONS (4)
  - GAMMA-GLUTAMYLTRANSFERASE INCREASED [None]
  - LIPASE INCREASED [None]
  - BLOOD ALKALINE PHOSPHATASE INCREASED [None]
  - ABDOMINAL PAIN UPPER [None]
